FAERS Safety Report 23830121 (Version 4)
Quarter: 2024Q2

REPORT INFORMATION
  Report Type: Report from Study
  Country: CH (occurrence: CH)
  Receive Date: 20240508
  Receipt Date: 20240514
  Transmission Date: 20240716
  Serious: Yes (Hospitalization)
  Sender: FDA-Public Use
  Company Number: CH-ABBVIE-5743374

PATIENT
  Sex: Female

DRUGS (6)
  1. CARBIDOPA\LEVODOPA [Suspect]
     Active Substance: CARBIDOPA\LEVODOPA
     Indication: Parkinson^s disease
     Dosage: MD: 2.0 ML, CRD: 2.0 ML/H, ED: 1.0 ML, CRN: 1.0 ML/H?FREQUENCY TEXT: 24H THERAPY
     Route: 050
     Dates: start: 20240425, end: 20240426
  2. CARBIDOPA\LEVODOPA [Suspect]
     Active Substance: CARBIDOPA\LEVODOPA
     Dosage: MD: 2.0 ML, CRD: 2.8 ML/H, ED: 0.5 ML, CRN: 1.5 ML/H?FREQUENCY TEXT: 24H THERAPY
     Route: 050
     Dates: start: 20240426, end: 20240429
  3. CARBIDOPA\LEVODOPA [Suspect]
     Active Substance: CARBIDOPA\LEVODOPA
     Dosage: MD: 2.0 ML, CRD: 3.0 ML/H, ED: 1.0 ML, CRN: 1.5 ML/H?FREQUENCY TEXT: 24H THERAPY
     Route: 050
     Dates: start: 20240429, end: 20240430
  4. CARBIDOPA\LEVODOPA [Suspect]
     Active Substance: CARBIDOPA\LEVODOPA
     Dosage: MD: 2.0 ML, CRD: 3.2 ML/H, ED: 1.0 ML, CRN: 2.0 ML/H?FREQUENCY TEXT: 24H THERAPY
     Route: 050
     Dates: start: 20240430
  5. Temesta [Concomitant]
     Indication: Product used for unknown indication
     Dates: start: 20240429
  6. AMOXICILLIN\CLAVULANATE POTASSIUM [Concomitant]
     Active Substance: AMOXICILLIN\CLAVULANATE POTASSIUM
     Indication: Product used for unknown indication
     Route: 042
     Dates: start: 202404

REACTIONS (22)
  - Respiratory failure [Not Recovered/Not Resolved]
  - Pneumonia [Recovering/Resolving]
  - Restlessness [Recovering/Resolving]
  - Somnolence [Recovered/Resolved]
  - Hypersomnia [Not Recovered/Not Resolved]
  - Fatigue [Not Recovered/Not Resolved]
  - Freezing phenomenon [Not Recovered/Not Resolved]
  - Chills [Recovered/Resolved]
  - Muscle twitching [Unknown]
  - Cough [Unknown]
  - Mobility decreased [Unknown]
  - Asthenia [Unknown]
  - Body temperature increased [Unknown]
  - Product administration error [Recovered/Resolved]
  - Hallucination [Unknown]
  - Hypophagia [Unknown]
  - Agitation [Unknown]
  - Dyskinesia [Not Recovered/Not Resolved]
  - Somnolence [Not Recovered/Not Resolved]
  - Dehydration [Not Recovered/Not Resolved]
  - Dry mouth [Unknown]
  - Lip dry [Unknown]

NARRATIVE: CASE EVENT DATE: 20240101
